FAERS Safety Report 7551083-1 (Version None)
Quarter: 2011Q2

REPORT INFORMATION
  Report Type: 
  Country: None (occurrence: None)
  Receive Date: 20110616
  Receipt Date: 20110607
  Transmission Date: 20111010
  Serious: Yes (Other)
  Sender: FDA-Public Use
  Company Number: BR-ASTRAZENECA-2011SE35340

PATIENT
  Age: 48 Year
  Sex: Male
  Weight: 106 kg

DRUGS (2)
  1. MOTILIUM [Concomitant]
     Indication: GASTRITIS
     Route: 048
     Dates: start: 20110501
  2. NEXIUM [Suspect]
     Indication: GASTRITIS
     Route: 048
     Dates: start: 20110501

REACTIONS (4)
  - PAIN IN EXTREMITY [None]
  - ASPIRATION JOINT [None]
  - ARTHRALGIA [None]
  - JOINT EFFUSION [None]
